FAERS Safety Report 14535250 (Version 1)
Quarter: 2018Q1

REPORT INFORMATION
  Report Type: Spontaneous
  Country: JP (occurrence: JP)
  Receive Date: 20180215
  Receipt Date: 20180215
  Transmission Date: 20180509
  Serious: Yes (Death)
  Sender: FDA-Public Use
  Company Number: JP-PFIZER INC-2018066001

PATIENT
  Age: 29 Year
  Sex: Male

DRUGS (1)
  1. XALKORI [Suspect]
     Active Substance: CRIZOTINIB
     Indication: LUNG NEOPLASM MALIGNANT
     Dosage: UNK
     Dates: start: 20090903, end: 20100627

REACTIONS (6)
  - Visual impairment [Unknown]
  - Nausea [Unknown]
  - Diarrhoea [Unknown]
  - Death [Fatal]
  - Neoplasm progression [Unknown]
  - Dysgeusia [Unknown]

NARRATIVE: CASE EVENT DATE: 20100627
